FAERS Safety Report 20863829 (Version 2)
Quarter: 2022Q4

REPORT INFORMATION
  Report Type: Report from Study
  Country: DE (occurrence: DE)
  Receive Date: 20220523
  Receipt Date: 20221202
  Transmission Date: 20230113
  Serious: Yes (Hospitalization, Other)
  Sender: FDA-Public Use
  Company Number: DE-NOVARTISPH-NVSC2022DE115615

PATIENT
  Age: 34 Year
  Sex: Male
  Weight: 75 kg

DRUGS (3)
  1. COSENTYX [Suspect]
     Active Substance: SECUKINUMAB
     Indication: Psoriatic arthropathy
     Dosage: 300 MG, QMO (EVERY 4 WEEKS)
     Route: 065
     Dates: start: 20210408, end: 20220110
  2. COSENTYX [Suspect]
     Active Substance: SECUKINUMAB
     Indication: Psoriasis
  3. SULFASALAZINE DELAYED-RELEASE [Concomitant]
     Active Substance: SULFASALAZINE
     Indication: Psoriatic arthropathy
     Dosage: 2 G (TARGET DOSE)
     Route: 048
     Dates: start: 202111

REACTIONS (7)
  - Arthropathy [Not Recovered/Not Resolved]
  - Hypogammaglobulinaemia [Recovered/Resolved with Sequelae]
  - Hypogammaglobulinaemia [Not Recovered/Not Resolved]
  - Tinea pedis [Recovered/Resolved]
  - Synovitis [Unknown]
  - Tendonitis [Unknown]
  - Oral herpes [Recovered/Resolved with Sequelae]

NARRATIVE: CASE EVENT DATE: 20210614
